FAERS Safety Report 10348277 (Version 2)
Quarter: 2014Q3

REPORT INFORMATION
  Report Type: Spontaneous
  Country: DE (occurrence: DE)
  Receive Date: 20140729
  Receipt Date: 20140922
  Transmission Date: 20150326
  Serious: Yes (Life-Threatening, Hospitalization, Disabling)
  Sender: FDA-Public Use
  Company Number: DE-GLAXOSMITHKLINE-D0085018A

PATIENT
  Age: 51 Year
  Sex: Male

DRUGS (1)
  1. ZYBAN [Suspect]
     Active Substance: BUPROPION HYDROCHLORIDE
     Indication: EX-TOBACCO USER
     Dosage: 150MG TWICE PER DAY
     Route: 048
     Dates: start: 201310, end: 201312

REACTIONS (8)
  - Drug ineffective [Unknown]
  - Urinary incontinence [Recovered/Resolved]
  - Convulsion [Recovered/Resolved with Sequelae]
  - Faecal incontinence [Recovered/Resolved]
  - Road traffic accident [Recovered/Resolved with Sequelae]
  - Spinal fracture [Recovered/Resolved with Sequelae]
  - Aura [Recovered/Resolved]
  - Headache [Recovered/Resolved]

NARRATIVE: CASE EVENT DATE: 201401
